FAERS Safety Report 5510777-X (Version None)
Quarter: 2007Q4

REPORT INFORMATION
  Report Type: 
  Country: None (occurrence: None)
  Receive Date: 20071108
  Receipt Date: 20071106
  Transmission Date: 20080405
  Serious: Yes (Death, Other)
  Sender: FDA-Public Use
  Company Number: B0494040A

PATIENT
  Sex: Female

DRUGS (7)
  1. PAROXETINE [Suspect]
     Indication: DEPRESSION
     Dosage: 90MG PER DAY
     Route: 048
     Dates: start: 20060101, end: 20070915
  2. OLANZAPINE [Suspect]
     Dosage: 10MG PER DAY
     Route: 048
     Dates: start: 20070913, end: 20070915
  3. METFORMIN HCL [Concomitant]
     Dosage: 1000MG PER DAY
     Route: 048
     Dates: end: 20070915
  4. MIRTAZAPINE [Concomitant]
     Indication: DEPRESSION
     Route: 048
     Dates: start: 20070906, end: 20070915
  5. GLICLAZIDE [Concomitant]
     Route: 048
     Dates: end: 20070915
  6. ASPIRIN [Concomitant]
     Indication: ANTIPLATELET THERAPY
     Route: 048
     Dates: start: 20070907, end: 20070915
  7. DIAZEPAM [Concomitant]

REACTIONS (1)
  - PULMONARY EMBOLISM [None]
